FAERS Safety Report 13147965 (Version 1)
Quarter: 2017Q1

REPORT INFORMATION
  Report Type: Other
  Country: DE (occurrence: DE)
  Receive Date: 20170125
  Receipt Date: 20170125
  Transmission Date: 20170428
  Serious: Yes (Death, Congenital Anomaly, Other)
  Sender: FDA-Public Use
  Company Number: DE-LUPIN PHARMACEUTICALS INC.-2017-00390

PATIENT
  Age: 4 Day
  Sex: Male

DRUGS (4)
  1. PROGESTERONE. [Suspect]
     Active Substance: PROGESTERONE
     Indication: PROPHYLAXIS OF ABORTION
     Route: 064
  2. ONDANSTERON [Suspect]
     Active Substance: ONDANSETRON
     Indication: VOMITING
     Route: 064
  3. ESCITALOPRAM [Suspect]
     Active Substance: ESCITALOPRAM OXALATE
     Indication: DEPRESSION
     Route: 064
  4. SERTRALINE [Suspect]
     Active Substance: SERTRALINE HYDROCHLORIDE
     Indication: DEPRESSION
     Route: 064

REACTIONS (6)
  - Human herpesvirus 6 infection [Unknown]
  - Foetal exposure during pregnancy [Unknown]
  - Maternal drugs affecting foetus [None]
  - Congestive cardiomyopathy [Fatal]
  - Neonatal multi-organ failure [None]
  - Congenital infection [None]
